FAERS Safety Report 12762186 (Version 1)
Quarter: 2016Q3

REPORT INFORMATION
  Report Type: Spontaneous
  Country: GB (occurrence: GB)
  Receive Date: 20160920
  Receipt Date: 20160920
  Transmission Date: 20161109
  Serious: Yes (Other)
  Sender: FDA-Public Use
  Company Number: GB-TEVA-692695ACC

PATIENT
  Age: 73 Year
  Sex: Female
  Weight: 74 kg

DRUGS (3)
  1. RAMIPRIL. [Suspect]
     Active Substance: RAMIPRIL
     Dates: start: 20151231
  2. ATORVASTATIN [Concomitant]
     Active Substance: ATORVASTATIN
     Dosage: 1 DOSAGE FORMS DAILY;
     Dates: start: 20151231
  3. RIVAROXABAN [Concomitant]
     Active Substance: RIVAROXABAN
     Dosage: 1 DOSAGE FORMS DAILY;
     Dates: start: 20160324

REACTIONS (1)
  - Anaphylactic reaction [Recovered/Resolved]

NARRATIVE: CASE EVENT DATE: 20160830
